FAERS Safety Report 10198066 (Version 1)
Quarter: 2014Q2

REPORT INFORMATION
  Report Type: Spontaneous
  Country: US (occurrence: US)
  Receive Date: 20140527
  Receipt Date: 20140527
  Transmission Date: 20141212
  Serious: No
  Sender: FDA-Public Use
  Company Number: US-NOVEN-13US006859

PATIENT
  Age: 8 Year
  Sex: Male
  Weight: 22.22 kg

DRUGS (3)
  1. DAYTRANA [Suspect]
     Indication: ATTENTION DEFICIT/HYPERACTIVITY DISORDER
     Dosage: 20 MG, UNKNOWN
     Route: 062
     Dates: start: 201212
  2. DAYTRANA [Suspect]
     Dosage: 20 MG, UNKNOWN
     Route: 062
     Dates: start: 201212
  3. GUANFACINE [Concomitant]
     Indication: ATTENTION DEFICIT/HYPERACTIVITY DISORDER
     Dosage: 1 MG, BID
     Route: 048

REACTIONS (6)
  - Application site erythema [Recovered/Resolved]
  - Application site pain [Recovered/Resolved]
  - Application site pruritus [Recovered/Resolved]
  - Incorrect drug administration duration [Unknown]
  - Wrong technique in drug usage process [Unknown]
  - Product quality issue [Unknown]
